FAERS Safety Report 10244013 (Version 2)
Quarter: 2014Q2

REPORT INFORMATION
  Report Type: Report from Study
  Country: US (occurrence: US)
  Receive Date: 20140618
  Receipt Date: 20140623
  Transmission Date: 20141212
  Serious: Yes (Hospitalization)
  Sender: FDA-Public Use
  Company Number: US-JNJFOC-20140609094

PATIENT
  Age: 19 Year
  Sex: Female
  Weight: 56.7 kg

DRUGS (4)
  1. REMICADE [Suspect]
     Indication: INFLAMMATORY BOWEL DISEASE
     Route: 042
     Dates: start: 20100305, end: 20110427
  2. ACETAMINOPHEN [Concomitant]
     Route: 065
  3. IBUPROFEN [Concomitant]
     Route: 065
  4. CONTRACEPTIVE ORAL [Concomitant]
     Route: 065

REACTIONS (1)
  - Small intestinal obstruction [Recovered/Resolved]
